FAERS Safety Report 9178022 (Version 1)
Quarter: 2012Q4

REPORT INFORMATION
  Report Type: 
  Country: US (occurrence: US)
  Receive Date: 20121017
  Receipt Date: 20121017
  Transmission Date: 20130627
  Serious: Yes (Other)
  Sender: FDA-Public Use
  Company Number: US-RB-045612-12

PATIENT
  Age: 47 Year
  Sex: Female

DRUGS (4)
  1. SUBOXONE FILM [Suspect]
     Indication: DRUG DEPENDENCE
     Dosage: Prescribed 24 mg; tapered doses to the present dose of 1-2 mg twice daily
     Route: 060
     Dates: start: 2011
  2. PAXIL [Suspect]
     Indication: DEPRESSION
     Dosage: Dosing details unknown
     Route: 048
     Dates: start: 1992
  3. KLONOPIN [Suspect]
     Indication: ANXIETY
     Route: 048
  4. TRAZODONE [Suspect]
     Indication: DEPRESSION
     Route: 048
     Dates: start: 201209, end: 201210

REACTIONS (6)
  - Suicidal ideation [Recovered/Resolved]
  - Wrong technique in drug usage process [Not Recovered/Not Resolved]
  - Underdose [Not Recovered/Not Resolved]
  - Irritability [Recovered/Resolved]
  - Anxiety [Recovered/Resolved]
  - Dyspnoea [Recovered/Resolved]
